FAERS Safety Report 18276658 (Version 2)
Quarter: 2020Q4

REPORT INFORMATION
  Report Type: Spontaneous
  Country: US (occurrence: US)
  Receive Date: 20200917
  Receipt Date: 20201012
  Transmission Date: 20210113
  Serious: Yes (Death)
  Sender: FDA-Public Use
  Company Number: US-ROCHE-2678011

PATIENT
  Age: 77 Year
  Sex: Male

DRUGS (4)
  1. RITUXAN [Suspect]
     Active Substance: RITUXIMAB
     Indication: NON-HODGKIN^S LYMPHOMA
     Route: 041
     Dates: start: 2008, end: 2009
  2. OXALIPLATIN. [Concomitant]
     Active Substance: OXALIPLATIN
  3. FLUOROURACIL. [Concomitant]
     Active Substance: FLUOROURACIL
     Indication: COLON CANCER
  4. AVASTIN [Suspect]
     Active Substance: BEVACIZUMAB
     Indication: COLON CANCER
     Route: 042
     Dates: start: 201106, end: 20110601

REACTIONS (2)
  - Colon cancer [Fatal]
  - Therapeutic product effect decreased [Unknown]

NARRATIVE: CASE EVENT DATE: 201106
